FAERS Safety Report 13841362 (Version 1)
Quarter: 2017Q3

REPORT INFORMATION
  Report Type: Spontaneous
  Country: GB (occurrence: GB)
  Receive Date: 20170807
  Receipt Date: 20170807
  Transmission Date: 20171127
  Serious: Yes (Other)
  Sender: FDA-Public Use
  Company Number: GB-ELI_LILLY_AND_COMPANY-GB201708000772

PATIENT
  Sex: Male

DRUGS (1)
  1. ZYPREXA [Suspect]
     Active Substance: OLANZAPINE
     Indication: PSYCHOTIC DISORDER
     Dosage: UNK, UNKNOWN
     Route: 065
     Dates: start: 1998, end: 2000

REACTIONS (3)
  - Renal impairment [Unknown]
  - Diabetes mellitus [Unknown]
  - Weight increased [Unknown]

NARRATIVE: CASE EVENT DATE: 1998
